FAERS Safety Report 23226133 (Version 1)
Quarter: 2023Q4

REPORT INFORMATION
  Report Type: Spontaneous
  Country: FR (occurrence: FR)
  Receive Date: 20231124
  Receipt Date: 20231124
  Transmission Date: 20240109
  Serious: Yes (Hospitalization)
  Sender: FDA-Public Use
  Company Number: None

PATIENT
  Age: 87 Year
  Sex: Male
  Weight: 70 kg

DRUGS (3)
  1. MIANSERIN HYDROCHLORIDE [Suspect]
     Active Substance: MIANSERIN HYDROCHLORIDE
     Indication: Depression
     Route: 048
     Dates: start: 20230929, end: 20231002
  2. PREGABALIN [Suspect]
     Active Substance: PREGABALIN
     Indication: Guillain-Barre syndrome
     Route: 048
     Dates: start: 20230928, end: 20231002
  3. PRIVIGEN [Suspect]
     Active Substance: HUMAN IMMUNOGLOBULIN G
     Indication: Guillain-Barre syndrome
     Dosage: 140 GRAM, CYCLICAL
     Route: 048
     Dates: start: 20230915, end: 20230918

REACTIONS (3)
  - Eczema [Recovered/Resolved]
  - No adverse event [Unknown]
  - Off label use [Unknown]

NARRATIVE: CASE EVENT DATE: 20231001
